FAERS Safety Report 5378451-0 (Version None)
Quarter: 2007Q3

REPORT INFORMATION
  Report Type: 
  Country: None (occurrence: None)
  Receive Date: 20070702
  Receipt Date: 20070615
  Transmission Date: 20080115
  Serious: Yes (Disabling)
  Sender: FDA-Public Use
  Company Number: S07-FRA-02725-01

PATIENT
  Age: 50 Year
  Sex: Female
  Weight: 47 kg

DRUGS (11)
  1. SEROPRAM [Suspect]
     Indication: DEPRESSION
     Dosage: 18 MG QD PO
     Route: 048
     Dates: start: 20070201, end: 20070206
  2. SEROPRAM SOLUTION                 (CITALOPRAM HYDROBROMIDE) [Suspect]
     Indication: DEPRESSION
     Dates: start: 20070207, end: 20070531
  3. SEROPRAM SOLUTION (CITALOPRAM HYDROBROMIDE) [Suspect]
     Indication: DEPRESSION
     Dosage: 2 MG QD PO
     Route: 048
     Dates: start: 20070601
  4. SEROPRAM SOLUTION (CITALOPRAM HYDROBROMIDE) [Suspect]
     Indication: DEPRESSION
     Dosage: 28 MG QD PO
     Route: 048
     Dates: start: 19970101, end: 20061201
  5. SEROPRAM SOLUTION (CITALOPRAM HYDROBROMIDE) [Suspect]
     Indication: DEPRESSION
     Dosage: 26 MG QD PO
     Route: 048
     Dates: start: 20061202, end: 20061208
  6. SEROPRAM SOLUTION (CITALOPRAM HYDROBROMIDE) [Suspect]
     Indication: DEPRESSION
     Dosage: 24 MG QD PO
     Route: 048
     Dates: start: 20061209, end: 20061229
  7. SEROPRAM SOLUTION                          (CITALOPRAM HYDROBROMIDE) [Suspect]
     Indication: DEPRESSION
     Dosage: 22 MG QD PO
     Route: 048
     Dates: start: 20061230, end: 20070112
  8. SEROPRAM SOLUTION                         (CITALOPRAM HYDROBROMIDE) [Suspect]
     Indication: DEPRESSION
     Dosage: 20 MG QD PO
     Route: 048
     Dates: start: 20070113, end: 20070131
  9. PRAZEPAM [Concomitant]
  10. GINKOR [Concomitant]
  11. FENOFIBRATE [Concomitant]

REACTIONS (3)
  - CERVICAL ROOT PAIN [None]
  - DRUG INEFFECTIVE [None]
  - MUSCULOSKELETAL PAIN [None]
